FAERS Safety Report 7064628-5 (Version None)
Quarter: 2010Q4

REPORT INFORMATION
  Report Type: 
  Country: None (occurrence: None)
  Receive Date: 20101022
  Receipt Date: 20101022
  Transmission Date: 20110411
  Serious: Yes (Life-Threatening)
  Sender: FDA-Public Use
  Company Number: None

PATIENT
  Age: 33 Year
  Sex: Female
  Weight: 53.2 kg

DRUGS (2)
  1. HAIR FORCE 3 CAPSULES KAL [Suspect]
     Indication: ALOPECIA
     Dosage: 3 CAPSULES DAILY ORAL
     Route: 048
     Dates: start: 20100525
  2. HAIR FORCE 3 CAPSULES KAL [Suspect]
     Indication: ALOPECIA
     Dosage: 3 CAPSULES DAILY ORAL
     Route: 048
     Dates: start: 20100909

REACTIONS (6)
  - ANAPHYLACTIC SHOCK [None]
  - BLOOD PRESSURE INCREASED [None]
  - DYSPHAGIA [None]
  - HYPERSENSITIVITY [None]
  - PALPITATIONS [None]
  - TREMOR [None]
